FAERS Safety Report 17208923 (Version 1)
Quarter: 2019Q4

REPORT INFORMATION
  Report Type: Spontaneous
  Country: JP (occurrence: JP)
  Receive Date: 20191227
  Receipt Date: 20191227
  Transmission Date: 20200122
  Serious: Yes (Other)
  Sender: FDA-Public Use
  Company Number: JP-009507513-1912JPN000170J

PATIENT
  Age: 10 Decade
  Sex: Male

DRUGS (3)
  1. DILTIAZEM HYDROCHLORIDE. [Interacting]
     Active Substance: DILTIAZEM HYDROCHLORIDE
     Dosage: 30 MILLIGRAM, BID
     Route: 065
  2. BELSOMRA [Suspect]
     Active Substance: SUVOREXANT
     Indication: INSOMNIA
     Dosage: 15 MILLIGRAM, QD
     Route: 048
     Dates: start: 201611
  3. LUNESTA [Suspect]
     Active Substance: ESZOPICLONE
     Dosage: UNK
     Route: 048

REACTIONS (5)
  - Dementia [Unknown]
  - Feeling abnormal [Unknown]
  - Therapeutic response increased [Unknown]
  - Drug interaction [Unknown]
  - Overdose [Unknown]
